FAERS Safety Report 9393969 (Version 2)
Quarter: 2013Q3

REPORT INFORMATION
  Report Type: Report from Study
  Country: BR (occurrence: BR)
  Receive Date: 20130710
  Receipt Date: 20130809
  Transmission Date: 20140515
  Serious: Yes (Hospitalization)
  Sender: FDA-Public Use
  Company Number: BR-ABBOTT-13P-020-1114469-00

PATIENT
  Age: 68 Year
  Sex: Male

DRUGS (2)
  1. HUMIRA [Suspect]
     Indication: ANKYLOSING SPONDYLITIS
     Route: 058
     Dates: start: 201304
  2. HUMIRA [Suspect]
     Indication: RHEUMATIC DISORDER

REACTIONS (3)
  - Hypertensive crisis [Unknown]
  - Anaemia [Unknown]
  - Haematochezia [Unknown]
